FAERS Safety Report 6852085-0 (Version None)
Quarter: 2010Q3

REPORT INFORMATION
  Report Type: 
  Country: None (occurrence: None)
  Receive Date: 20100717
  Receipt Date: 20071106
  Transmission Date: 20110219
  Serious: No
  Sender: FDA-Public Use
  Company Number: US-PFIZER INC-2007094403

PATIENT
  Sex: Female
  Weight: 50.909 kg

DRUGS (3)
  1. CHANTIX [Suspect]
     Indication: SMOKING CESSATION THERAPY
     Dates: start: 20071001, end: 20071104
  2. ANTIHYPERTENSIVES [Concomitant]
     Indication: HYPERTENSION
  3. ALL OTHER THERAPEUTIC PRODUCTS [Concomitant]
     Indication: RESPIRATORY DISORDER

REACTIONS (4)
  - DISTURBANCE IN ATTENTION [None]
  - DIZZINESS [None]
  - FEELING ABNORMAL [None]
  - INSOMNIA [None]
